FAERS Safety Report 8043421-0 (Version None)
Quarter: 2012Q1

REPORT INFORMATION
  Report Type: 
  Country: None (occurrence: None)
  Receive Date: 20120112
  Receipt Date: 20120106
  Transmission Date: 20120608
  Serious: Yes (Hospitalization)
  Sender: FDA-Public Use
  Company Number: PHHY2012NL001042

PATIENT
  Sex: Male
  Weight: 80 kg

DRUGS (2)
  1. CARBASALATE CALCIUM [Concomitant]
     Dosage: UNK
     Dates: start: 20100701
  2. METOPROLOL SUCCINATE [Suspect]
     Indication: HYPERTENSION
     Dosage: 1 DF, DAILY
     Route: 048
     Dates: start: 20100601, end: 20110501

REACTIONS (2)
  - DIZZINESS [None]
  - MALAISE [None]
